FAERS Safety Report 9242092 (Version 2)
Quarter: 2013Q2

REPORT INFORMATION
  Report Type: Spontaneous
  Country: US (occurrence: US)
  Receive Date: 20130419
  Receipt Date: 20130424
  Transmission Date: 20140414
  Serious: No
  Sender: FDA-Public Use
  Company Number: US-PFIZER INC-2013119350

PATIENT
  Age: 54 Year
  Sex: Female
  Weight: 63.49 kg

DRUGS (2)
  1. FLAGYL [Suspect]
     Indication: DIVERTICULITIS
     Dosage: 500 MG, UNK
     Dates: start: 201201
  2. LEVOFLOXACIN [Concomitant]
     Indication: DIVERTICULITIS
     Dosage: 75 UG, 1X/DAY

REACTIONS (2)
  - Drug intolerance [Unknown]
  - Product solubility abnormal [Unknown]
